FAERS Safety Report 24977869 (Version 1)
Quarter: 2025Q1

REPORT INFORMATION
  Report Type: Spontaneous
  Country: US (occurrence: US)
  Receive Date: 20250217
  Receipt Date: 20250217
  Transmission Date: 20250408
  Serious: No
  Sender: PFIZER
  Company Number: US-PFIZER INC-202500033632

PATIENT
  Age: 62 Year
  Sex: Female

DRUGS (1)
  1. LORBRENA [Suspect]
     Active Substance: LORLATINIB
     Dosage: DAILY FOR 30 DAYS
     Route: 048
     Dates: start: 20240224

REACTIONS (1)
  - Neoplasm progression [Unknown]
